FAERS Safety Report 8880253 (Version 1)
Quarter: 2012Q4

REPORT INFORMATION
  Report Type: 
  Country: GB (occurrence: GB)
  Receive Date: 20121101
  Receipt Date: 20121101
  Transmission Date: 20130627
  Serious: Yes (Life-Threatening, Hospitalization)
  Sender: FDA-Public Use
  Company Number: PHFR2012GB005671

PATIENT
  Age: 68 Year
  Sex: Female
  Weight: 54 kg

DRUGS (5)
  1. TERBINAFINE [Suspect]
     Indication: ONYCHOMYCOSIS
     Route: 048
     Dates: start: 20120815, end: 20120907
  2. LEVOTHYROXINE [Concomitant]
  3. SIMVASTATIN [Concomitant]
     Route: 048
  4. HYPROMELLOSE [Concomitant]
  5. VANCOMYCIN [Concomitant]

REACTIONS (1)
  - Pustular psoriasis [Unknown]
